FAERS Safety Report 5066275-3 (Version None)
Quarter: 2006Q3

REPORT INFORMATION
  Report Type: 
  Country: None (occurrence: None)
  Receive Date: 20060728
  Receipt Date: 20060718
  Transmission Date: 20061208
  Serious: Yes (Other)
  Sender: FDA-Public Use
  Company Number: 2006-07-1408

PATIENT
  Age: 49 Year
  Sex: Male

DRUGS (8)
  1. PEG-INTRON [Suspect]
     Indication: HEPATITIS C
     Dosage: 120 MCG QWK SUBCUTANEOUS
     Route: 058
     Dates: start: 20060708
  2. RIBAVIRIN [Suspect]
     Indication: HEPATITIS C
     Dosage: 600 MG QD ORAL
     Route: 048
     Dates: start: 20060708
  3. ACIPHEX [Concomitant]
  4. RYTHMOL [Concomitant]
  5. LISINOPRIL/HYDROCHLOROTHIAZIDE TABLETS [Concomitant]
  6. LOVASTATIN TABLETS [Concomitant]
  7. ATENOLOL [Concomitant]
  8. XANAX [Concomitant]

REACTIONS (12)
  - ANXIETY [None]
  - ARTHRALGIA [None]
  - BLOOD PRESSURE DIASTOLIC INCREASED [None]
  - BLOOD PRESSURE INCREASED [None]
  - BONE PAIN [None]
  - DYSPNOEA [None]
  - FAECES PALE [None]
  - HEART RATE INCREASED [None]
  - INSOMNIA [None]
  - MYALGIA [None]
  - PAINFUL DEFAECATION [None]
  - VOMITING [None]
